FAERS Safety Report 7637121-6 (Version None)
Quarter: 2011Q3

REPORT INFORMATION
  Report Type: 
  Country: None (occurrence: None)
  Receive Date: 20110726
  Receipt Date: 20110711
  Transmission Date: 20111222
  Serious: Yes (Hospitalization, Other)
  Sender: FDA-Public Use
  Company Number: CA-WATSON-2011-11188

PATIENT
  Age: 45 Year
  Sex: Female

DRUGS (4)
  1. FENTANYL [Suspect]
     Indication: PAIN
     Dosage: 175 MICROGRAMS/HR Q48H
     Route: 062
  2. METHYLPREDNISOLONE [Suspect]
     Dosage: UNK
  3. OXYCET [Suspect]
     Indication: PAIN
     Dosage: 5/325 MG, QID
     Route: 065
  4. METHYLPREDNISOLONE [Suspect]
     Indication: ANTIINFLAMMATORY THERAPY
     Dosage: UNK
     Route: 008

REACTIONS (2)
  - ADRENAL INSUFFICIENCY [None]
  - SECONDARY HYPOGONADISM [None]
